FAERS Safety Report 6273179-7 (Version None)
Quarter: 2009Q3

REPORT INFORMATION
  Report Type: 
  Country: None (occurrence: None)
  Receive Date: 20090720
  Receipt Date: 20090715
  Transmission Date: 20100115
  Serious: Yes (Death, Hospitalization, Disabling, Other)
  Sender: FDA-Public Use
  Company Number: GB-BRISTOL-MYERS SQUIBB COMPANY-14702591

PATIENT
  Age: 80 Year
  Sex: Female
  Weight: 29 kg

DRUGS (5)
  1. CEPHRADINE [Suspect]
     Indication: CELLULITIS
     Route: 065
     Dates: start: 20081118, end: 20081125
  2. JANUVIA [Suspect]
     Indication: TYPE 2 DIABETES MELLITUS
     Dosage: TABS
     Route: 048
     Dates: start: 20080707, end: 20081125
  3. PENICILLIN V [Suspect]
     Indication: CELLULITIS
     Route: 065
     Dates: start: 20081118, end: 20081125
  4. BUMETANIDE [Concomitant]
     Indication: CARDIAC FAILURE
     Route: 048
  5. PHENOBARBITAL [Concomitant]
     Route: 065

REACTIONS (3)
  - INFECTION [None]
  - JAUNDICE CHOLESTATIC [None]
  - MYOCARDIAL INFARCTION [None]
